FAERS Safety Report 5729749-5 (Version None)
Quarter: 2008Q2

REPORT INFORMATION
  Report Type: 
  Country: None (occurrence: None)
  Receive Date: 20080506
  Receipt Date: 20080409
  Transmission Date: 20081010
  Serious: No
  Sender: FDA-Public Use
  Company Number: US-BOEHRINGER INGELHEIM GMBH, GERMANY-2008-BP-05640BP

PATIENT
  Sex: Female

DRUGS (10)
  1. SPIRIVA [Suspect]
     Indication: ASTHMA
     Route: 055
  2. SPIRIVA [Suspect]
     Indication: EMPHYSEMA
  3. ADVAIR HFA [Suspect]
     Indication: ASTHMA
     Route: 055
     Dates: end: 20080101
  4. ADVAIR HFA [Suspect]
     Indication: EMPHYSEMA
  5. PULMICORT [Suspect]
     Indication: ASTHMA
     Route: 055
     Dates: end: 20080101
  6. PULMICORT [Suspect]
     Indication: EMPHYSEMA
  7. SINGULAIR [Concomitant]
     Indication: ASTHMA
     Route: 048
  8. SINGULAIR [Concomitant]
     Indication: EMPHYSEMA
  9. XOPENEX HFA [Concomitant]
     Indication: ASTHMA
     Route: 055
  10. XOPENEX HFA [Concomitant]
     Indication: EMPHYSEMA

REACTIONS (3)
  - DYSPHASIA [None]
  - EPISTAXIS [None]
  - THROAT IRRITATION [None]
